FAERS Safety Report 15981801 (Version 3)
Quarter: 2019Q2

REPORT INFORMATION
  Report Type: Spontaneous
  Country: IT (occurrence: IT)
  Receive Date: 20190219
  Receipt Date: 20190603
  Transmission Date: 20190711
  Serious: Yes (Other)
  Sender: FDA-Public Use
  Company Number: IT-SA-2019SA042929

PATIENT
  Age: 74 Year
  Sex: Female

DRUGS (5)
  1. CARDIOASPIRIN [Concomitant]
     Active Substance: ASPIRIN
  2. LANTUS [Suspect]
     Active Substance: INSULIN GLARGINE
     Dosage: 1 DF, TOTAL
     Route: 058
     Dates: start: 20181204, end: 20181204
  3. TOTALIP [Concomitant]
     Active Substance: ATORVASTATIN
     Dosage: UNK
  4. LANTUS [Suspect]
     Active Substance: INSULIN GLARGINE
     Indication: DRUG ABUSE
     Dosage: 100 DF, TOTAL
     Route: 058
  5. METFORMIN [Concomitant]
     Active Substance: METFORMIN HYDROCHLORIDE
     Route: 065

REACTIONS (5)
  - Intentional product misuse [Unknown]
  - Syncope [Recovering/Resolving]
  - Drug abuse [Unknown]
  - Medication error [Recovering/Resolving]
  - Poisoning [Recovering/Resolving]

NARRATIVE: CASE EVENT DATE: 20181204
